FAERS Safety Report 9161594 (Version 4)
Quarter: 2014Q3

REPORT INFORMATION
  Report Type: Spontaneous
  Country: US (occurrence: US)
  Receive Date: 20130313
  Receipt Date: 20140818
  Transmission Date: 20150326
  Serious: Yes (Life-Threatening, Hospitalization, Other)
  Sender: FDA-Public Use
  Company Number: US-009507513-1303USA004784

PATIENT
  Sex: Female
  Weight: 84.81 kg

DRUGS (2)
  1. NUVARING [Suspect]
     Active Substance: ETHINYL ESTRADIOL\ETONOGESTREL
     Indication: DYSMENORRHOEA
     Dosage: INSERT ONE RING VAGINALLY AND LEAVE IN PLACE FOR THREE WEEKS, THEN REMOVE FOR SEVEN DAYS
     Route: 067
     Dates: start: 20110712, end: 20110824
  2. NUVARING [Suspect]
     Active Substance: ETHINYL ESTRADIOL\ETONOGESTREL
     Indication: MENORRHAGIA

REACTIONS (44)
  - Transfusion [Unknown]
  - Conjunctivitis [Unknown]
  - Mental status changes [Unknown]
  - Arthroscopic surgery [Unknown]
  - Nausea [Recovered/Resolved]
  - Vena cava filter insertion [Unknown]
  - Iron deficiency [Unknown]
  - Stomatitis [Unknown]
  - Pulmonary embolism [Recovered/Resolved]
  - Dyskinesia [Recovered/Resolved]
  - Alveolar lung disease [Unknown]
  - Hypoalbuminaemia [Unknown]
  - Aspiration joint [Unknown]
  - Fluid overload [Unknown]
  - Decreased appetite [Unknown]
  - Dysuria [Unknown]
  - Pyrexia [Unknown]
  - Stevens-Johnson syndrome [Unknown]
  - Haemarthrosis [Unknown]
  - Procedural haemorrhage [Unknown]
  - Depression [Unknown]
  - Tricuspid valve incompetence [Unknown]
  - Pericardial effusion [Unknown]
  - Anaemia of chronic disease [Not Recovered/Not Resolved]
  - Off label use [Unknown]
  - Vena cava filter removal [Unknown]
  - Toxic epidermal necrolysis [Unknown]
  - Muscle spasms [Unknown]
  - Deep vein thrombosis [Unknown]
  - Pain [Not Recovered/Not Resolved]
  - Haemorrhagic anaemia [Unknown]
  - Herpes simplex [Unknown]
  - Syncope [Unknown]
  - Depression [Unknown]
  - Heparin-induced thrombocytopenia [Unknown]
  - Ileus [Unknown]
  - Constipation [Unknown]
  - Hypercoagulation [Unknown]
  - Cardiac ventricular thrombosis [Recovered/Resolved]
  - Hypotension [Unknown]
  - Transaminases increased [Unknown]
  - Withdrawal syndrome [Unknown]
  - Renal failure [Recovering/Resolving]
  - Generalised oedema [Unknown]

NARRATIVE: CASE EVENT DATE: 201107
